FAERS Safety Report 6198299-7 (Version None)
Quarter: 2009Q2

REPORT INFORMATION
  Report Type: 
  Country: None (occurrence: None)
  Receive Date: 20090521
  Receipt Date: 20090511
  Transmission Date: 20091009
  Serious: Yes (Other)
  Sender: FDA-Public Use
  Company Number: US-ELI_LILLY_AND_COMPANY-US200905002093

PATIENT
  Sex: Female

DRUGS (4)
  1. STRATTERA [Suspect]
     Indication: ATTENTION DEFICIT/HYPERACTIVITY DISORDER
     Dosage: 10 MG, UNKNOWN
     Route: 065
  2. STRATTERA [Suspect]
     Dosage: 18 MG, UNKNOWN
     Route: 065
  3. STRATTERA [Suspect]
     Dosage: 25 MG, UNKNOWN
     Route: 065
  4. SINGULAIR [Concomitant]

REACTIONS (8)
  - ABDOMINAL PAIN UPPER [None]
  - ARRHYTHMIA [None]
  - DRUG INEFFECTIVE [None]
  - DRY MOUTH [None]
  - IRRITABILITY [None]
  - MOOD SWINGS [None]
  - POOR QUALITY SLEEP [None]
  - TENSION [None]
